FAERS Safety Report 5946678-2 (Version None)
Quarter: 2008Q4

REPORT INFORMATION
  Report Type: 
  Country: None (occurrence: None)
  Receive Date: 20081110
  Receipt Date: 20080805
  Transmission Date: 20090506
  Serious: No
  Sender: FDA-Public Use
  Company Number: A0741603A

PATIENT
  Sex: Female

DRUGS (1)
  1. ALTABAX [Suspect]
     Indication: WOUND INFECTION
     Route: 061

REACTIONS (3)
  - APPLICATION SITE IRRITATION [None]
  - WOUND COMPLICATION [None]
  - WOUND INFECTION [None]
